FAERS Safety Report 10866551 (Version 1)
Quarter: 2015Q1

REPORT INFORMATION
  Report Type: Spontaneous
  Country: US (occurrence: None)
  Receive Date: 20150220
  Receipt Date: 20150220
  Transmission Date: 20150721
  Serious: Yes (Disabling)
  Sender: FDA-Public Use
  Company Number: None

PATIENT
  Age: 50 Year
  Sex: Female
  Weight: 81.19 kg

DRUGS (6)
  1. HYDROCODONE 10/325 GENERIC FOR NORCO [Suspect]
     Active Substance: ACETAMINOPHEN\HYDROCODONE BITARTRATE
     Indication: INTERVERTEBRAL DISC DEGENERATION
     Dosage: 2 TABLETS
     Route: 048
     Dates: start: 20150209, end: 20150219
  2. VITAMIN D [Concomitant]
     Active Substance: CHOLECALCIFEROL
  3. HYDROCODONE 10/325 GENERIC FOR NORCO [Suspect]
     Active Substance: ACETAMINOPHEN\HYDROCODONE BITARTRATE
     Indication: SPINAL FUSION SURGERY
     Dosage: 2 TABLETS
     Route: 048
     Dates: start: 20150209, end: 20150219
  4. MULTI VITAMIN [Concomitant]
     Active Substance: VITAMINS
  5. KERATIN [Concomitant]
     Active Substance: KERATIN
  6. NABUMETONE. [Concomitant]
     Active Substance: NABUMETONE

REACTIONS (12)
  - Spinal pain [None]
  - Migraine [None]
  - Tinnitus [None]
  - Somnolence [None]
  - Pain [None]
  - Vomiting [None]
  - Dizziness [None]
  - Product substitution issue [None]
  - Hypersomnia [None]
  - Lethargy [None]
  - Inner ear disorder [None]
  - Product quality issue [None]

NARRATIVE: CASE EVENT DATE: 20150209
